FAERS Safety Report 9350444 (Version 1)
Quarter: 2013Q2

REPORT INFORMATION
  Report Type: Spontaneous
  Country: US (occurrence: US)
  Receive Date: 20130617
  Receipt Date: 20130617
  Transmission Date: 20140414
  Serious: No
  Sender: FDA-Public Use
  Company Number: US-PFIZER INC-2013177780

PATIENT
  Age: 55 Year
  Sex: Male
  Weight: 113 kg

DRUGS (7)
  1. AVINZA [Suspect]
     Indication: TENDONITIS
     Dosage: 30 MG, DAILY
  2. AVINZA [Suspect]
     Indication: MUSCULOSKELETAL PAIN
     Dosage: 90 MG, DAILY
  3. AVINZA [Suspect]
     Indication: PAIN IN EXTREMITY
     Dosage: 60 MG, DAILY
  4. AVINZA [Suspect]
     Dosage: 45 MG, DAILY
  5. AVINZA [Suspect]
     Dosage: 30 MG, DAILY
     Dates: start: 2013
  6. AVINZA [Suspect]
     Dosage: 30 MG, EVERY 36 HOURS
     Dates: start: 2013
  7. LIPITOR [Concomitant]
     Indication: BLOOD CHOLESTEROL ABNORMAL
     Dosage: 100 MG, DAILY

REACTIONS (4)
  - Drug withdrawal syndrome [Unknown]
  - Muscle twitching [Unknown]
  - Joint swelling [Unknown]
  - Wrong technique in drug usage process [Unknown]
